FAERS Safety Report 6572605-3 (Version None)
Quarter: 2010Q1

REPORT INFORMATION
  Report Type: 
  Country: None (occurrence: None)
  Receive Date: 20100205
  Receipt Date: 20100128
  Transmission Date: 20100710
  Serious: Yes (Hospitalization)
  Sender: FDA-Public Use
  Company Number: US-BAXTER-2010BH002132

PATIENT
  Age: 56 Year
  Sex: Female
  Weight: 68 kg

DRUGS (6)
  1. CYCLOPHOSPHAMIDE [Suspect]
     Indication: DRUG USE FOR UNKNOWN INDICATION
     Route: 042
     Dates: start: 20090921
  2. CYCLOPHOSPHAMIDE [Suspect]
     Route: 042
     Dates: start: 20091102
  3. ABT-888 [Suspect]
     Indication: NEOPLASM
     Route: 048
     Dates: start: 20090921
  4. ABT-888 [Suspect]
     Route: 048
     Dates: start: 20091102
  5. DOXORUBICIN HCL [Suspect]
     Indication: DRUG USE FOR UNKNOWN INDICATION
     Route: 042
     Dates: start: 20090921
  6. DOXORUBICIN HCL [Suspect]
     Route: 042
     Dates: start: 20091102

REACTIONS (1)
  - DEHYDRATION [None]
